FAERS Safety Report 19425733 (Version 2)
Quarter: 2021Q3

REPORT INFORMATION
  Report Type: Spontaneous
  Country: IN (occurrence: IN)
  Receive Date: 20210616
  Receipt Date: 20210712
  Transmission Date: 20211014
  Serious: Yes (Death)
  Sender: FDA-Public Use
  Company Number: IN-PFIZER INC-2021245737

PATIENT
  Age: 53 Year
  Sex: Female

DRUGS (4)
  1. PALBACE [Suspect]
     Active Substance: PALBOCICLIB
     Indication: BREAST CANCER METASTATIC
     Dosage: 100 MG, D1?21, 3 WEEKS ON, 1 WEEK OFF
     Route: 048
     Dates: start: 20210207, end: 20210225
  2. ZOLDRIA [Concomitant]
     Active Substance: ZOLEDRONIC ACID
     Dosage: UNK, MONTHLY FOR 6 MONTHS
  3. PALBACE [Suspect]
     Active Substance: PALBOCICLIB
     Dosage: 125 MG, 1X/DAY
     Route: 048
     Dates: start: 20210207
  4. PALBACE [Suspect]
     Active Substance: PALBOCICLIB
     Dosage: 100 MG, D1?21, 3 WEEKS ON, 1 WEEK OFF
     Route: 048
     Dates: start: 2021, end: 20210516

REACTIONS (3)
  - Diarrhoea [Not Recovered/Not Resolved]
  - Vomiting [Not Recovered/Not Resolved]
  - Neoplasm progression [Fatal]

NARRATIVE: CASE EVENT DATE: 2021
